FAERS Safety Report 17561953 (Version 1)
Quarter: 2020Q1

REPORT INFORMATION
  Report Type: Spontaneous
  Country: DK (occurrence: DK)
  Receive Date: 20200319
  Receipt Date: 20200319
  Transmission Date: 20200409
  Serious: Yes (Hospitalization)
  Sender: FDA-Public Use
  Company Number: DK-TEVA-2020-DK-1202872

PATIENT
  Age: 39 Year
  Sex: Male

DRUGS (9)
  1. DUPILUMAB [Concomitant]
     Active Substance: DUPILUMAB
     Indication: DERMATITIS ATOPIC
     Dosage: STRENGTH: UNKNOWN, DOSAGE: UNKNOWN
     Dates: start: 2015
  2. CETIRIZINE [Concomitant]
     Active Substance: CETIRIZINE HYDROCHLORIDE
     Indication: DERMATITIS ATOPIC
     Dosage: STRENGTH: UNKNOWN, DOSAGE: UNKNOWN
  3. NIZORAL [Concomitant]
     Active Substance: KETOCONAZOLE
     Indication: DERMATITIS ATOPIC
     Dosage: STRENGTH: UNKNOWN, DOSAGE: UNKNOWN
  4. OMALIZUMAB. [Concomitant]
     Active Substance: OMALIZUMAB
     Indication: DERMATITIS ATOPIC
     Dosage: STRENGTH: UNKNOWN, DOSAGE: UNKNOWN
     Dates: start: 20160209, end: 20160226
  5. ELOCOM [Concomitant]
     Active Substance: MOMETASONE FUROATE
     Indication: DERMATITIS ATOPIC
     Dosage: STRENGTH: UNKNOWN, DOSAGE: UNKNOWN
     Dates: start: 2015
  6. METHOTREXATE. [Concomitant]
     Active Substance: METHOTREXATE
     Indication: DERMATITIS ATOPIC
     Dosage: STRENGTH: UNKNOWN, DOSAGE: UNKNOWN
     Dates: start: 2015
  7. CICLOSPORIN [Concomitant]
     Active Substance: CYCLOSPORINE
     Indication: DERMATITIS ATOPIC
     Dosage: STRENGTH: UNKNOWN, DOSAGE: UNKNOWN
     Route: 048
     Dates: start: 20140908
  8. PREDNISOLONE. [Suspect]
     Active Substance: PREDNISOLONE
     Indication: DERMATITIS ATOPIC
     Dosage: STRENGTH: UNKNOWN, DOSE VARIATION FROM 50 MG DAILY TO 12.5 MG DAILY.
     Route: 048
     Dates: start: 20131217
  9. DEPO-MEDROL [Concomitant]
     Active Substance: METHYLPREDNISOLONE ACETATE
     Indication: DERMATITIS ATOPIC
     Dosage: STRENGTH: 40 MG / ML, DOSAGE UNKNOWN, ONE INJECTION GIVEN
     Dates: start: 20150211

REACTIONS (8)
  - Empty sella syndrome [Unknown]
  - Myalgia intercostal [Not Recovered/Not Resolved]
  - Muscle rupture [Unknown]
  - Myalgia [Not Recovered/Not Resolved]
  - Contusion [Unknown]
  - Muscle fatigue [Not Recovered/Not Resolved]
  - Chest pain [Not Recovered/Not Resolved]
  - Peripheral swelling [Unknown]

NARRATIVE: CASE EVENT DATE: 20180421
